FAERS Safety Report 6581623-0 (Version None)
Quarter: 2010Q1

REPORT INFORMATION
  Report Type: 
  Country: None (occurrence: None)
  Receive Date: 20100215
  Receipt Date: 20100204
  Transmission Date: 20100710
  Serious: Yes (Disabling, Other)
  Sender: FDA-Public Use
  Company Number: CH-AMGEN-QUU380269

PATIENT
  Sex: Female
  Weight: 71 kg

DRUGS (9)
  1. ARANESP [Suspect]
     Indication: DIALYSIS
     Route: 042
     Dates: start: 20091201
  2. PREDNISONE [Concomitant]
     Route: 048
     Dates: start: 20010101
  3. PRAVASTATIN [Concomitant]
     Route: 048
     Dates: start: 20010101
  4. NEXIUM [Concomitant]
     Route: 048
     Dates: start: 20010101
  5. CITALOPRAM [Concomitant]
     Dates: start: 20010101
  6. DIAMICRON [Concomitant]
     Dates: start: 20010101
  7. IMUREK [Concomitant]
     Dates: start: 20010101
  8. DILATREND [Concomitant]
     Dates: start: 20010101
  9. UNSPECIFIED MEDICATION [Concomitant]
     Dates: start: 20010101

REACTIONS (1)
  - ANAEMIA [None]
